FAERS Safety Report 9859609 (Version 1)
Quarter: 2014Q1

REPORT INFORMATION
  Report Type: Spontaneous
  Country: US (occurrence: US)
  Receive Date: 20140131
  Receipt Date: 20140131
  Transmission Date: 20141002
  Serious: No
  Sender: FDA-Public Use
  Company Number: US-009507513-1401USA013529

PATIENT
  Sex: Female

DRUGS (1)
  1. MIRALAX [Suspect]
     Indication: CONSTIPATION
     Dosage: 34 G, Q2H
     Route: 048

REACTIONS (5)
  - Nasopharyngitis [Unknown]
  - Respiratory tract congestion [Unknown]
  - Flushing [Not Recovered/Not Resolved]
  - Prescribed overdose [Unknown]
  - Inappropriate schedule of drug administration [Unknown]
